FAERS Safety Report 11072775 (Version 1)
Quarter: 2015Q2

REPORT INFORMATION
  Report Type: Spontaneous
  Country: DE (occurrence: DE)
  Receive Date: 20150428
  Receipt Date: 20150428
  Transmission Date: 20150821
  Serious: Yes (Other)
  Sender: FDA-Public Use
  Company Number: DE-CIPLA LTD.-2015DE03390

PATIENT

DRUGS (5)
  1. GEMCITABINE [Suspect]
     Active Substance: GEMCITABINE\GEMCITABINE HYDROCHLORIDE
     Dosage: 1000 MG/M2, EVERY 3 WEEKS
     Dates: start: 20130422, end: 20130715
  2. NAB-PACLITAXEL [Suspect]
     Active Substance: PACLITAXEL
     Indication: INVASIVE DUCTAL BREAST CARCINOMA
     Dosage: 200 MG/M2
     Dates: start: 20130422
  3. PACLITAXEL. [Suspect]
     Active Substance: PACLITAXEL
     Indication: INVASIVE DUCTAL BREAST CARCINOMA
     Dosage: 200 MG/M2, UNK
     Dates: start: 20130318
  4. NAB-PACLITAXEL [Suspect]
     Active Substance: PACLITAXEL
     Dosage: 300 MG/M2
     Dates: start: 20130624, end: 20130715
  5. GEMCITABINE [Suspect]
     Active Substance: GEMCITABINE\GEMCITABINE HYDROCHLORIDE
     Indication: INVASIVE DUCTAL BREAST CARCINOMA
     Dosage: 1000 MG/M2, UNK
     Dates: start: 20130318

REACTIONS (6)
  - Metastases to thorax [Recovered/Resolved]
  - Drug ineffective [Recovered/Resolved]
  - Disease progression [Recovered/Resolved]
  - Mucosal inflammation [Recovered/Resolved]
  - Metastases to liver [Recovered/Resolved]
  - Metastases to bone [Recovered/Resolved]

NARRATIVE: CASE EVENT DATE: 20130328
